FAERS Safety Report 4641410-7 (Version None)
Quarter: 2005Q2

REPORT INFORMATION
  Report Type: 
  Country: None (occurrence: None)
  Receive Date: 20050420
  Receipt Date: 20050420
  Transmission Date: 20051028
  Serious: Yes (Other)
  Sender: FDA-Public Use
  Company Number: None

PATIENT
  Sex: Female
  Weight: 72.5755 kg

DRUGS (3)
  1. PAROXETINE [Suspect]
     Indication: ANXIETY
     Dosage: 1 PO QD
     Route: 048
     Dates: start: 20050225, end: 20050419
  2. PAROXETINE [Suspect]
     Indication: DEPRESSION
     Dosage: 1 PO QD
     Route: 048
     Dates: start: 20050225, end: 20050419
  3. NECON [Concomitant]

REACTIONS (1)
  - ECCHYMOSIS [None]
